FAERS Safety Report 8188528-2 (Version None)
Quarter: 2012Q1

REPORT INFORMATION
  Report Type: 
  Country: None (occurrence: None)
  Receive Date: 20120306
  Receipt Date: 20120229
  Transmission Date: 20120608
  Serious: Yes (Other)
  Sender: FDA-Public Use
  Company Number: PHHY2012JP012665

PATIENT
  Age: 18 Year
  Sex: Male

DRUGS (1)
  1. TEGRETOL [Suspect]
     Dosage: 100 MG, BID
     Route: 048

REACTIONS (2)
  - INFECTIOUS PERITONITIS [None]
  - ORAL ADMINISTRATION COMPLICATION [None]
